FAERS Safety Report 20544879 (Version 1)
Quarter: 2022Q1

REPORT INFORMATION
  Report Type: Report from Study
  Country: US (occurrence: US)
  Receive Date: 20220303
  Receipt Date: 20220303
  Transmission Date: 20220423
  Serious: Yes (Other)
  Sender: FDA-Public Use
  Company Number: US-TEVA-778581USA

PATIENT
  Age: 60 Year
  Sex: Female

DRUGS (3)
  1. AUSTEDO [Interacting]
     Active Substance: DEUTETRABENAZINE
     Indication: Huntington^s disease
     Dosage: 48 MILLIGRAM DAILY; TWO 12 MG IN THE AM AND TWO 12 MG IN THE PM
     Route: 065
     Dates: start: 20170525, end: 20170527
  2. TETRABENAZINE [Suspect]
     Active Substance: TETRABENAZINE
     Dosage: DOUBLE HER [TETRABENAZINE] DOSE THE DAY BEFORE SHE STARTED AUSTEDO
     Route: 065
     Dates: end: 20170524
  3. NAMZARIC [Interacting]
     Active Substance: DONEPEZIL HYDROCHLORIDE\MEMANTINE HYDROCHLORIDE
     Route: 065
     Dates: start: 20170525

REACTIONS (9)
  - Disease progression [Not Recovered/Not Resolved]
  - Memory impairment [Not Recovered/Not Resolved]
  - Gait disturbance [Recovered/Resolved]
  - Product prescribing issue [Unknown]
  - Incorrect dose administered [Unknown]
  - Confusional state [Recovered/Resolved]
  - Balance disorder [Recovered/Resolved]
  - Condition aggravated [Not Recovered/Not Resolved]
  - Drug interaction [Recovered/Resolved]

NARRATIVE: CASE EVENT DATE: 20170101
